FAERS Safety Report 8621992-0 (Version None)
Quarter: 2012Q3

REPORT INFORMATION
  Report Type: 
  Country: None (occurrence: None)
  Receive Date: 20120823
  Receipt Date: 20120823
  Transmission Date: 20120928
  Serious: No
  Sender: FDA-Public Use
  Company Number: None

PATIENT
  Sex: Male
  Weight: 106.5953 kg

DRUGS (1)
  1. PRILOSEC [Suspect]
     Indication: OESOPHAGEAL DISORDER
     Dosage: ONE PER DAY BEFORE BREAKFAST PER DAY PO
     Route: 048
     Dates: start: 20120819, end: 20120821

REACTIONS (5)
  - HEADACHE [None]
  - FLATULENCE [None]
  - DIARRHOEA [None]
  - ABDOMINAL PAIN UPPER [None]
  - LETHARGY [None]
